FAERS Safety Report 9407554 (Version 3)
Quarter: 2015Q3

REPORT INFORMATION
  Report Type: Spontaneous
  Country: DK (occurrence: DK)
  Receive Date: 20130718
  Receipt Date: 20150710
  Transmission Date: 20151125
  Serious: Yes (Other)
  Sender: FDA-Public Use
  Company Number: DK-TEVA-418721ISR

PATIENT
  Age: 62 Year
  Sex: Female

DRUGS (10)
  1. CITALOPRAM [Concomitant]
     Active Substance: CITALOPRAM HYDROBROMIDE
     Indication: DEPRESSION
     Dosage: 20 MILLIGRAM DAILY;
     Route: 048
     Dates: start: 19960226
  2. METHOTREXATE [Suspect]
     Active Substance: METHOTREXATE
     Indication: RHEUMATOID ARTHRITIS
     Dates: start: 19880716, end: 20010521
  3. CORODIL [Concomitant]
     Active Substance: DIPYRIDAMOLE
     Indication: HYPERTENSION
     Dosage: 1 DOSAGE FORMS DAILY;
     Route: 048
     Dates: start: 20050627, end: 20110415
  4. CALCICHEW-D3 [Concomitant]
     Active Substance: CALCIUM\CHOLECALCIFEROL
     Indication: VITAMIN SUPPLEMENTATION
     Dosage: 2 DOSAGE FORMS DAILY; STRENGTH (500 + 5 MG)
     Route: 048
     Dates: start: 20050812, end: 20121201
  5. FOLIMET [Concomitant]
     Indication: RHEUMATOID ARTHRITIS
     Dosage: .7143 MILLIGRAM DAILY;
     Route: 048
     Dates: start: 20071017, end: 20110105
  6. VAGIFEM [Concomitant]
     Active Substance: ESTRADIOL
     Indication: URINARY INCONTINENCE
     Dosage: .2857 DOSAGE FORMS DAILY; STRENGTH:25 OR 10 MICROGRAM
     Route: 067
     Dates: start: 20050625
  7. METHOTREXATE [Suspect]
     Active Substance: METHOTREXATE
     Dates: start: 20020319, end: 20120529
  8. CALCICHEW-D3 [Concomitant]
     Active Substance: CALCIUM\CHOLECALCIFEROL
     Indication: MINERAL SUPPLEMENTATION
  9. ALENDRONATE [Concomitant]
     Active Substance: ALENDRONATE SODIUM
     Indication: OSTEOPOROSIS
     Dosage: 10 MILLIGRAM DAILY;
     Route: 048
     Dates: end: 20130111
  10. REMICADE [Concomitant]
     Active Substance: INFLIXIMAB
     Indication: RHEUMATOID ARTHRITIS
     Dates: start: 2005, end: 20140128

REACTIONS (2)
  - Cough [Recovered/Resolved]
  - Bronchiectasis [Not Recovered/Not Resolved]

NARRATIVE: CASE EVENT DATE: 201009
